FAERS Safety Report 4313961-6 (Version None)
Quarter: 2004Q1

REPORT INFORMATION
  Report Type: 
  Country: None (occurrence: None)
  Receive Date: 20040305
  Receipt Date: 20040107
  Transmission Date: 20041129
  Serious: Yes (Death, Hospitalization, Other)
  Sender: FDA-Public Use
  Company Number: 2003125516

PATIENT
  Age: 49 Year
  Sex: Female

DRUGS (1)
  1. VORICONAZOLE (VORICONAZOLE) [Suspect]
     Indication: ILL-DEFINED DISORDER
     Dosage: INTRAVENOUS
     Route: 042
     Dates: start: 20031206, end: 20031210

REACTIONS (3)
  - ACIDOSIS [None]
  - COAGULOPATHY [None]
  - MULTI-ORGAN FAILURE [None]
